FAERS Safety Report 5088718-1 (Version None)
Quarter: 2006Q3

REPORT INFORMATION
  Report Type: 
  Country: None (occurrence: None)
  Receive Date: 20060825
  Receipt Date: 20060717
  Transmission Date: 20061208
  Serious: Yes (Other)
  Sender: FDA-Public Use
  Company Number: MX-GLAXOSMITHKLINE-A0612890A

PATIENT

DRUGS (2)
  1. LAMIVUDINE [Suspect]
     Indication: DRUG USE FOR UNKNOWN INDICATION
     Route: 065
  2. HEPSERA [Suspect]
     Indication: HEPATITIS B
     Route: 048

REACTIONS (5)
  - DRUG INEFFECTIVE [None]
  - GENE MUTATION [None]
  - HEPATITIS B VIRUS [None]
  - PHARMACEUTICAL PRODUCT COMPLAINT [None]
  - VIRAL LOAD INCREASED [None]
